FAERS Safety Report 8060453-7 (Version None)
Quarter: 2012Q1

REPORT INFORMATION
  Report Type: 
  Country: None (occurrence: None)
  Receive Date: 20120120
  Receipt Date: 20120112
  Transmission Date: 20120608
  Serious: Yes (Other)
  Sender: FDA-Public Use
  Company Number: FR-GLAXOSMITHKLINE-B0775156A

PATIENT
  Sex: Female

DRUGS (2)
  1. LAPATINIB [Suspect]
     Indication: BREAST CANCER METASTATIC
     Dosage: 1000MG PER DAY
     Route: 048
     Dates: start: 20110901
  2. INNOHEP [Concomitant]
     Indication: VENOUS THROMBOSIS
     Dosage: .5ML PER DAY
     Route: 065

REACTIONS (5)
  - DIPLOPIA [None]
  - PAPILLOEDEMA [None]
  - EYELID OEDEMA [None]
  - DYSPHAGIA [None]
  - DIARRHOEA [None]
